FAERS Safety Report 6400288-1 (Version None)
Quarter: 2009Q4

REPORT INFORMATION
  Report Type: 
  Country: None (occurrence: None)
  Receive Date: 20091014
  Receipt Date: 20091013
  Transmission Date: 20100525
  Serious: Yes (Hospitalization)
  Sender: FDA-Public Use
  Company Number: US-B.I. PHARMACEUTICALS,INC./RIDGEFIELD-2009-BP-10839BP

PATIENT
  Sex: Male

DRUGS (11)
  1. SPIRIVA [Suspect]
     Indication: CHRONIC OBSTRUCTIVE PULMONARY DISEASE
     Dosage: 18 MCG
     Route: 055
     Dates: start: 20090301
  2. ASPIRIN [Concomitant]
     Indication: CARDIAC DISORDER
  3. OMEGA FISH OIL [Concomitant]
     Indication: CARDIAC DISORDER
  4. LASIX [Concomitant]
     Indication: CARDIAC DISORDER
  5. HYDRALAZINE HCL [Concomitant]
     Indication: HYPERTENSION
  6. PLAVIX [Concomitant]
     Indication: CORONARY ARTERIAL STENT INSERTION
  7. DIOVAN [Concomitant]
     Indication: HYPERTENSION
  8. POTASSIUM CHLORIDE [Concomitant]
     Indication: CARDIAC DISORDER
  9. COREG [Concomitant]
     Indication: CARDIAC DISORDER
  10. PRILOSEC [Concomitant]
     Indication: GASTROOESOPHAGEAL REFLUX DISEASE
  11. SIMVASTATIN [Concomitant]
     Indication: BLOOD CHOLESTEROL INCREASED

REACTIONS (2)
  - FALL [None]
  - HIP FRACTURE [None]
